FAERS Safety Report 9276441 (Version 1)
Quarter: 2013Q2

REPORT INFORMATION
  Report Type: Report from Study
  Country: US (occurrence: US)
  Receive Date: 20130507
  Receipt Date: 20130507
  Transmission Date: 20140414
  Serious: Yes (Hospitalization, Other)
  Sender: FDA-Public Use
  Company Number: US-ABBOTT-13P-163-1083471-00

PATIENT
  Age: 39 Year
  Sex: Male
  Weight: 79.45 kg

DRUGS (3)
  1. HUMIRA [Suspect]
     Indication: CROHN^S DISEASE
     Dates: start: 2005
  2. LISINOPRIL [Suspect]
     Indication: HYPERTENSION
  3. PROTONIX [Concomitant]
     Indication: CROHN^S DISEASE

REACTIONS (16)
  - Blood potassium decreased [Recovered/Resolved]
  - Crohn^s disease [Recovered/Resolved]
  - Vomiting [Recovered/Resolved]
  - Crohn^s disease [Recovered/Resolved]
  - Vomiting [Recovered/Resolved]
  - Abdominal pain upper [Recovered/Resolved]
  - Dehydration [Recovered/Resolved]
  - Escherichia sepsis [Recovered/Resolved]
  - Pyrexia [Recovered/Resolved]
  - Blood potassium decreased [Recovered/Resolved]
  - Cholecystectomy [Unknown]
  - Abdominal adhesions [Unknown]
  - Intestinal obstruction [Recovered/Resolved]
  - Campylobacter infection [Recovered/Resolved]
  - White blood cell count increased [Unknown]
  - Electrolyte imbalance [Recovered/Resolved]
